FAERS Safety Report 6074279-7 (Version None)
Quarter: 2009Q1

REPORT INFORMATION
  Report Type: 
  Country: None (occurrence: None)
  Receive Date: 20090211
  Receipt Date: 20090202
  Transmission Date: 20090719
  Serious: Yes (Other)
  Sender: FDA-Public Use
  Company Number: US-CELGENEUS-163-21880-08110897

PATIENT
  Sex: Female

DRUGS (3)
  1. REVLIMID [Suspect]
     Indication: MULTIPLE MYELOMA
     Route: 048
     Dates: start: 20081023, end: 20081110
  2. REVLIMID [Suspect]
     Route: 048
     Dates: start: 20081121
  3. GABAPENTIN [Concomitant]
     Route: 065

REACTIONS (4)
  - DIZZINESS [None]
  - PRURITUS [None]
  - PYREXIA [None]
  - RASH PAPULAR [None]
